FAERS Safety Report 25807522 (Version 1)
Quarter: 2025Q3

REPORT INFORMATION
  Report Type: Spontaneous
  Country: GB (occurrence: GB)
  Receive Date: 20250916
  Receipt Date: 20250916
  Transmission Date: 20251021
  Serious: Yes (Death, Hospitalization, Other)
  Sender: RISING PHARMACEUTICALS
  Company Number: GB-RISINGPHARMA-GB-2025RISLIT00462

PATIENT
  Age: 8 Decade
  Sex: Male

DRUGS (1)
  1. CAPECITABINE [Suspect]
     Active Substance: CAPECITABINE
     Indication: Colon cancer
     Route: 065
     Dates: start: 20221018, end: 20221031

REACTIONS (15)
  - Intestinal ischaemia [Fatal]
  - Hypoxia [Fatal]
  - Pneumatosis intestinalis [Fatal]
  - Atrial fibrillation [Fatal]
  - Pancytopenia [Fatal]
  - Colitis [Fatal]
  - Toxicity to various agents [Fatal]
  - Diarrhoea [Fatal]
  - Rash [Fatal]
  - Dry skin [Fatal]
  - Lip ulceration [Fatal]
  - Abdominal pain [Fatal]
  - Hypophagia [Fatal]
  - Tachycardia [Fatal]
  - Tachypnoea [Fatal]

NARRATIVE: CASE EVENT DATE: 20221028
